FAERS Safety Report 5832375-0 (Version None)
Quarter: 2008Q3

REPORT INFORMATION
  Report Type: 
  Country: None (occurrence: None)
  Receive Date: 20080804
  Receipt Date: 20080728
  Transmission Date: 20090109
  Serious: Yes (Hospitalization)
  Sender: FDA-Public Use
  Company Number: KR-MERCK-0807KOR00044

PATIENT
  Age: 49 Year
  Sex: Female

DRUGS (4)
  1. CANCIDAS [Suspect]
     Route: 051
  2. AMPHOTERICIN B [Concomitant]
     Indication: ERYTHEMA
     Route: 065
  3. ITRACONAZOLE [Concomitant]
     Route: 065
  4. FLUCONAZOLE [Concomitant]
     Route: 065

REACTIONS (1)
  - DRUG INEFFECTIVE [None]
